FAERS Safety Report 6878025-6 (Version None)
Quarter: 2010Q3

REPORT INFORMATION
  Report Type: 
  Country: None (occurrence: None)
  Receive Date: 20100727
  Receipt Date: 20100713
  Transmission Date: 20110219
  Serious: Yes (Hospitalization, Other)
  Sender: FDA-Public Use
  Company Number: US-ELI_LILLY_AND_COMPANY-US201007002872

PATIENT
  Sex: Female

DRUGS (9)
  1. FORTEO [Suspect]
     Indication: OSTEOPOROSIS
     Dosage: 20 UG, DAILY (1/D)
     Route: 058
  2. FORTEO [Suspect]
     Dosage: 20 UG, DAILY (1/D)
     Dates: start: 20100611, end: 20100625
  3. DIGOXIN [Concomitant]
     Dosage: 125 MG, DAILY (1/D)
  4. SPIRONOLACTONE [Concomitant]
     Dosage: 50 MG, DAILY (1/D)
  5. LASIX [Concomitant]
  6. URSO FORTE [Concomitant]
     Dosage: 500 MG, DAILY (1/D)
  7. LEVOTHYROXINE [Concomitant]
     Dosage: 75 MG, DAILY (1/D)
  8. ASCORBIC ACID [Concomitant]
     Dosage: 500 MG, 3/D
  9. IRON [Concomitant]

REACTIONS (8)
  - BREAST CANCER [None]
  - EPISTAXIS [None]
  - FALL [None]
  - HAEMOGLOBIN DECREASED [None]
  - LIVER FUNCTION TEST ABNORMAL [None]
  - PELVIC FRACTURE [None]
  - RENAL CANCER [None]
  - RIB FRACTURE [None]
